FAERS Safety Report 10154915 (Version 3)
Quarter: 2014Q2

REPORT INFORMATION
  Report Type: Report from Study
  Country: JP (occurrence: JP)
  Receive Date: 20140506
  Receipt Date: 20140627
  Transmission Date: 20141212
  Serious: Yes (Death)
  Sender: FDA-Public Use
  Company Number: JP-PURDUE-GBR-2014-0018152

PATIENT
  Age: 69 Year
  Sex: Male

DRUGS (14)
  1. OXYCODONE HYDROCHLORIDE [Suspect]
     Indication: CANCER PAIN
     Dosage: 1.5 MG/HR, UNK
     Route: 042
     Dates: start: 20130806, end: 20130806
  2. OXYCODONE HYDROCHLORIDE [Suspect]
     Dosage: 2 MG/HR
     Route: 042
     Dates: start: 20130806, end: 20130806
  3. OXYCODONE HYDROCHLORIDE [Suspect]
     Dosage: 0.5 MG, PRN (9 TIMES)
     Route: 042
     Dates: start: 20130806, end: 20130806
  4. OXYCODONE HYDROCHLORIDE [Suspect]
     Dosage: 1 MG/HR, CONTINOUS DOSE
     Route: 042
     Dates: start: 20130805, end: 20130805
  5. OXYCODONE HYDROCHLORIDE [Suspect]
     Dosage: 0.5 MG, PRN
     Route: 042
     Dates: start: 20130805, end: 20130805
  6. OXYCODONE HCL PR TABLET [Suspect]
     Indication: CANCER PAIN
     Dosage: 20 MG, DAILY
     Route: 048
     Dates: start: 20130723, end: 20130804
  7. OXYCODONE HCL IR POWDER 0.5% [Suspect]
     Indication: CANCER PAIN
     Dosage: UNK
     Route: 048
     Dates: start: 20130723, end: 20130804
  8. LOXONIN [Concomitant]
     Indication: CANCER PAIN
     Dosage: 180 MG, DAILY
     Route: 048
     Dates: end: 20130804
  9. TRAMAL [Concomitant]
     Indication: CANCER PAIN
     Dosage: 100 MG, DAILY
     Route: 048
     Dates: start: 20130723, end: 20130730
  10. ANPEC                              /00014302/ [Concomitant]
     Indication: CANCER PAIN
     Dosage: 10 MG, DAILY
     Route: 054
     Dates: start: 20130804, end: 20130804
  11. FENTANYL [Concomitant]
     Indication: CANCER PAIN
     Dosage: 0.84 MG, DAILY
     Route: 062
     Dates: start: 20130804, end: 20130804
  12. OMEPRAL                            /00661201/ [Concomitant]
     Indication: PROPHYLAXIS
     Dosage: 20 MG, DAILY
     Route: 065
     Dates: end: 20130806
  13. ROPION [Concomitant]
     Indication: CANCER PAIN
     Dosage: 50 MG, UNK
     Route: 065
     Dates: start: 20130806, end: 20130806
  14. SOLDEM 1 [Concomitant]
     Indication: PROPHYLAXIS
     Dosage: 500 ML, DAILY
     Route: 065
     Dates: start: 20130805, end: 20130806

REACTIONS (1)
  - Tumour haemorrhage [Fatal]
